FAERS Safety Report 7843374-1 (Version None)
Quarter: 2011Q4

REPORT INFORMATION
  Report Type: 
  Country: None (occurrence: None)
  Receive Date: 20111020
  Receipt Date: 20111007
  Transmission Date: 20120403
  Serious: Yes (Disabling)
  Sender: FDA-Public Use
  Company Number: 2011SP048044

PATIENT
  Age: 53 Year
  Sex: Male

DRUGS (1)
  1. PEG-INTRON [Suspect]
     Indication: HEPATITIS C
     Dosage: SC
     Route: 058
     Dates: start: 20101119

REACTIONS (7)
  - WEIGHT DECREASED [None]
  - MALAISE [None]
  - IMPAIRED WORK ABILITY [None]
  - ALOPECIA [None]
  - HEADACHE [None]
  - MOOD SWINGS [None]
  - ANXIETY [None]
